FAERS Safety Report 16211232 (Version 2)
Quarter: 2019Q2

REPORT INFORMATION
  Report Type: Spontaneous
  Country: US (occurrence: US)
  Receive Date: 20190418
  Receipt Date: 20190423
  Transmission Date: 20190711
  Serious: Yes (Life-Threatening, Hospitalization, Other)
  Sender: FDA-Public Use
  Company Number: US-DRREDDYS-USA/USA/19/0109582

PATIENT
  Age: 29 Year
  Sex: Female

DRUGS (1)
  1. SUMATRIPTAN INJECTION USP, 6 MG/0.5 ML [Suspect]
     Active Substance: SUMATRIPTAN
     Indication: MIGRAINE
     Dosage: 6 MG/0.5 ML
     Route: 058

REACTIONS (12)
  - Cerebral haemorrhage [Recovered/Resolved]
  - Intracranial pressure increased [Recovered/Resolved]
  - Hydrocephalus [Recovered/Resolved]
  - Altered state of consciousness [Recovered/Resolved]
  - Memory impairment [Not Recovered/Not Resolved]
  - Subarachnoid haemorrhage [Recovered/Resolved]
  - Posterior reversible encephalopathy syndrome [Recovered/Resolved]
  - Hemianopia homonymous [Recovered/Resolved]
  - Reversible cerebral vasoconstriction syndrome [Recovered/Resolved]
  - Brain oedema [Recovered/Resolved]
  - Psychomotor skills impaired [Not Recovered/Not Resolved]
  - Blood pressure increased [Recovered/Resolved]
